FAERS Safety Report 5840638-8 (Version None)
Quarter: 2008Q3

REPORT INFORMATION
  Report Type: 
  Country: None (occurrence: None)
  Receive Date: 20080811
  Receipt Date: 20080729
  Transmission Date: 20090109
  Serious: Yes (Other)
  Sender: FDA-Public Use
  Company Number: PHHY2008DE15887

PATIENT
  Sex: Male

DRUGS (9)
  1. ZOMETA [Suspect]
     Indication: PLASMACYTOMA
     Dosage: UNK
     Route: 042
     Dates: start: 20030801, end: 20060201
  2. PREDNISOLON [Concomitant]
     Indication: PLASMACYTOMA
     Dosage: 5 CYCLES
     Dates: start: 20040601, end: 20041001
  3. BENDAMUSTINE [Concomitant]
     Indication: PLASMACYTOMA
     Dosage: 5 CYCLES
     Route: 042
     Dates: start: 20040601, end: 20041001
  4. BENDAMUSTINE [Concomitant]
     Dosage: 4 CYCLES
     Dates: start: 20051201, end: 20060301
  5. MELPHALAN [Concomitant]
     Indication: PLASMACYTOMA
     Dosage: UNK
     Route: 042
     Dates: start: 20050401
  6. MELPHALAN [Concomitant]
     Dosage: 3 CYCLES
     Route: 042
     Dates: start: 20050501, end: 20050901
  7. PREDNISON [Concomitant]
     Indication: PLASMACYTOMA
     Dosage: UNK
     Route: 048
     Dates: start: 20050401
  8. PREDNISON [Concomitant]
     Dosage: UNK
     Route: 048
     Dates: start: 20050501, end: 20050901
  9. BORTEZOMIB [Concomitant]
     Indication: PLASMACYTOMA
     Dosage: UNK
     Dates: start: 20051001, end: 20051101

REACTIONS (4)
  - COLON POLYPECTOMY [None]
  - JAW DISORDER [None]
  - OSTEONECROSIS [None]
  - PNEUMONIA [None]
